FAERS Safety Report 6736760-4 (Version None)
Quarter: 2010Q2

REPORT INFORMATION
  Report Type: 
  Country: None (occurrence: None)
  Receive Date: 20100521
  Receipt Date: 20100513
  Transmission Date: 20101027
  Serious: Yes (Other)
  Sender: FDA-Public Use
  Company Number: SE-PFIZER INC-2010061197

PATIENT
  Sex: Female

DRUGS (1)
  1. XANOR [Suspect]
     Dosage: 2 MG, 1X/DAY
     Dates: start: 19870101

REACTIONS (4)
  - ASTHENIA [None]
  - MEMORY IMPAIRMENT [None]
  - PAIN [None]
  - PARKINSONISM [None]
